FAERS Safety Report 14973972 (Version 3)
Quarter: 2018Q3

REPORT INFORMATION
  Report Type: Spontaneous
  Country: CN (occurrence: CN)
  Receive Date: 20180605
  Receipt Date: 20180712
  Transmission Date: 20181010
  Serious: Yes (Death)
  Sender: FDA-Public Use
  Company Number: CN-BRACCO-2018CN02999

PATIENT
  Age: 72 Year
  Sex: Male

DRUGS (3)
  1. NORMAL SALINE [Suspect]
     Active Substance: SODIUM CHLORIDE
     Indication: THERAPEUTIC PROCEDURE
     Dosage: 5 ML, 0.9% SODIUM CHLORIDE
     Route: 042
     Dates: start: 20180521, end: 20180521
  2. NORMAL SALINE [Suspect]
     Active Substance: SODIUM CHLORIDE
     Indication: THERAPEUTIC PROCEDURE
     Dosage: 15 ML, UNK
     Route: 042
     Dates: start: 20180521, end: 20180521
  3. MULTIHANCE [Suspect]
     Active Substance: GADOBENATE DIMEGLUMINE
     Indication: NUCLEAR MAGNETIC RESONANCE IMAGING BRAIN
     Dosage: 15 ML, 2ML/SEC VIA POWER INJECTOR
     Route: 042
     Dates: start: 20180521, end: 20180521

REACTIONS (5)
  - Anaphylactic shock [Fatal]
  - Nausea [Unknown]
  - Sudden cardiac death [Fatal]
  - Abdominal discomfort [Unknown]
  - Retching [Unknown]

NARRATIVE: CASE EVENT DATE: 20180521
